FAERS Safety Report 7572270-2 (Version None)
Quarter: 2011Q2

REPORT INFORMATION
  Report Type: 
  Country: None (occurrence: None)
  Receive Date: 20110624
  Receipt Date: 20110614
  Transmission Date: 20111010
  Serious: Yes (Hospitalization)
  Sender: FDA-Public Use
  Company Number: PHHY2011US49609

PATIENT
  Age: 46 Year
  Sex: Female
  Weight: 135 kg

DRUGS (5)
  1. EXTAVIA [Suspect]
     Route: 058
  2. INTERFERON BETA-1A                 /00596808/ [Concomitant]
     Route: 058
  3. INTERFERON BETA-1A                 /00596808/ [Concomitant]
     Route: 030
  4. GLATIRAMER ACETATE [Concomitant]
  5. NATALIZUMAB [Concomitant]

REACTIONS (3)
  - FATIGUE [None]
  - INFLUENZA LIKE ILLNESS [None]
  - RESPIRATORY DISORDER [None]
